FAERS Safety Report 8490780-0 (Version None)
Quarter: 2012Q3

REPORT INFORMATION
  Report Type: 
  Country: None (occurrence: None)
  Receive Date: 20120706
  Receipt Date: 20120628
  Transmission Date: 20120928
  Serious: Yes (Hospitalization, Other)
  Sender: FDA-Public Use
  Company Number: US-BIOGENIDEC-2012BI009567

PATIENT
  Age: 53 Year
  Sex: Female

DRUGS (3)
  1. AVONEX [Suspect]
     Route: 030
  2. AVONEX [Suspect]
     Indication: MULTIPLE SCLEROSIS
     Route: 030
     Dates: start: 20040416, end: 20041201
  3. AVONEX [Suspect]
     Route: 030
     Dates: start: 20111201, end: 20120301

REACTIONS (6)
  - URINARY TRACT INFECTION [None]
  - PLATELET COUNT DECREASED [None]
  - VOMITING [None]
  - DIARRHOEA [None]
  - VIRAL INFECTION [None]
  - DEHYDRATION [None]
